FAERS Safety Report 9628030 (Version 1)
Quarter: 2013Q4

REPORT INFORMATION
  Report Type: Spontaneous
  Country: MX (occurrence: MX)
  Receive Date: 20131016
  Receipt Date: 20131016
  Transmission Date: 20140711
  Serious: Yes (Death)
  Sender: FDA-Public Use
  Company Number: MX-B.I. PHARMACEUTICALS,INC./RIDGEFIELD-2013-BI-32715MX

PATIENT
  Sex: Male

DRUGS (2)
  1. TRAYENTA DUO [Suspect]
     Dosage: DOSE: 1,0,1
  2. COMPETACT [Suspect]
     Dosage: DOSE: 1,0,1

REACTIONS (1)
  - Death [Fatal]
